FAERS Safety Report 17510812 (Version 5)
Quarter: 2020Q2

REPORT INFORMATION
  Report Type: Spontaneous
  Country: US (occurrence: US)
  Receive Date: 20200306
  Receipt Date: 20200624
  Transmission Date: 20200713
  Serious: Yes (Other)
  Sender: FDA-Public Use
  Company Number: US-LEXICON PHARMACEUTICALS, INC-20-1606-00175

PATIENT
  Age: 81 Year
  Sex: Female

DRUGS (2)
  1. XERMELO [Suspect]
     Active Substance: TELOTRISTAT ETHYL
     Indication: CARCINOID SYNDROME
     Dates: start: 20190709
  2. SANDOSTATIN [Concomitant]
     Active Substance: OCTREOTIDE ACETATE
     Indication: PRODUCT USED FOR UNKNOWN INDICATION

REACTIONS (8)
  - Weight decreased [Unknown]
  - Frequent bowel movements [Not Recovered/Not Resolved]
  - Constipation [Unknown]
  - Malabsorption [Unknown]
  - Pain [Unknown]
  - Abdominal distension [Unknown]
  - Osteoporosis [Unknown]
  - Disease progression [Unknown]
